FAERS Safety Report 7005757-1 (Version None)
Quarter: 2010Q3

REPORT INFORMATION
  Report Type: 
  Country: None (occurrence: None)
  Receive Date: 20100921
  Receipt Date: 20100908
  Transmission Date: 20110219
  Serious: Yes (Hospitalization)
  Sender: FDA-Public Use
  Company Number: US-ELI_LILLY_AND_COMPANY-US201009003633

PATIENT
  Sex: Female

DRUGS (7)
  1. FORTEO [Suspect]
     Dosage: 20 UG, UNKNOWN
     Dates: start: 20100401
  2. PLAVIX [Concomitant]
  3. KADIAN [Concomitant]
  4. LEXAPRO [Concomitant]
  5. NEXIUM [Concomitant]
  6. VITAMIN D [Concomitant]
  7. RECLAST [Concomitant]

REACTIONS (3)
  - BACK PAIN [None]
  - KNEE ARTHROPLASTY [None]
  - OFF LABEL USE [None]
